FAERS Safety Report 6644067-9 (Version None)
Quarter: 2010Q1

REPORT INFORMATION
  Report Type: 
  Country: None (occurrence: None)
  Receive Date: 20100322
  Receipt Date: 20100308
  Transmission Date: 20100710
  Serious: Yes (Hospitalization, Other)
  Sender: FDA-Public Use
  Company Number: PHHY2009BR27843

PATIENT
  Sex: Female

DRUGS (13)
  1. TRILEPTAL [Suspect]
     Indication: CONVULSION
     Dosage: 2 ML, Q8H
     Route: 048
  2. TRILEPTAL [Suspect]
     Dosage: 2 ML, Q8H
     Route: 048
     Dates: start: 20090702
  3. TRILEPTAL [Suspect]
     Dosage: UNK
     Route: 048
  4. FRISIUM [Concomitant]
     Indication: CONVULSION
     Dosage: 10 MG, UNK
  5. TOPAMAX [Concomitant]
     Dosage: 50 MG, UNK
     Dates: start: 20061128
  6. TOPAMAX [Concomitant]
     Dosage: UNK
     Dates: start: 20070124
  7. TOPAMAX [Concomitant]
     Dosage: UNK
     Dates: start: 20070223
  8. TOPAMAX [Concomitant]
     Dosage: UNK
     Dates: start: 20070315
  9. TOPAMAX [Concomitant]
     Dosage: UNK
     Dates: start: 20070412
  10. TOPAMAX [Concomitant]
     Dosage: UNK
     Dates: start: 20070518
  11. TOPAMAX [Concomitant]
     Dosage: UNK
     Dates: start: 20070524
  12. TOPAMAX [Concomitant]
     Dosage: UNK
     Dates: start: 20070620
  13. TOPAMAX [Concomitant]
     Dosage: UNK
     Dates: start: 20070719

REACTIONS (26)
  - ASPIRATION BRONCHIAL [None]
  - BRONCHITIS [None]
  - CONDITION AGGRAVATED [None]
  - CONVULSION [None]
  - CYANOSIS [None]
  - DEHYDRATION [None]
  - DYSPHAGIA [None]
  - DYSPNOEA [None]
  - HYDROTHORAX [None]
  - INFECTION [None]
  - INSOMNIA [None]
  - IRRITABILITY [None]
  - LETHARGY [None]
  - MALAISE [None]
  - MECHANICAL VENTILATION [None]
  - MUSCLE CONTRACTIONS INVOLUNTARY [None]
  - NAUSEA [None]
  - OESOPHAGEAL DISORDER [None]
  - ORAL MUCOSAL DISCOLOURATION [None]
  - PNEUMONIA ASPIRATION [None]
  - RESPIRATORY FAILURE [None]
  - RESTLESSNESS [None]
  - SENSORY LOSS [None]
  - SOMNOLENCE [None]
  - VISUAL ACUITY REDUCED [None]
  - VOMITING [None]
